FAERS Safety Report 19909603 (Version 3)
Quarter: 2022Q1

REPORT INFORMATION
  Report Type: Spontaneous
  Country: US (occurrence: US)
  Receive Date: 20211002
  Receipt Date: 20220214
  Transmission Date: 20220423
  Serious: Yes (Death, Hospitalization, Other)
  Sender: FDA-Public Use
  Company Number: US-REGENERON PHARMACEUTICALS, INC.-2021-58340

PATIENT

DRUGS (2)
  1. EYLEA [Suspect]
     Active Substance: AFLIBERCEPT
     Indication: Diabetic retinopathy
     Dosage: 2 MG, EVERY 4 TO 5 WEEKS IN LEFT EYE
     Route: 031
     Dates: start: 20190522, end: 20190522
  2. EYLEA [Suspect]
     Active Substance: AFLIBERCEPT
     Indication: Diabetic retinal oedema
     Dosage: LAST INJECTION IN BOTH EYES
     Route: 031
     Dates: start: 20191120, end: 20191120

REACTIONS (8)
  - Glioblastoma [Fatal]
  - Post procedural infection [Recovered/Resolved]
  - Confusional state [Not Recovered/Not Resolved]
  - Gait disturbance [Unknown]
  - Memory impairment [Not Recovered/Not Resolved]
  - Amnesia [Not Recovered/Not Resolved]
  - Pain [Unknown]
  - Intervertebral disc degeneration [Unknown]

NARRATIVE: CASE EVENT DATE: 20191216
